FAERS Safety Report 9100991 (Version 1)
Quarter: 2013Q1

REPORT INFORMATION
  Report Type: Spontaneous
  Country: FR (occurrence: FR)
  Receive Date: 20130215
  Receipt Date: 20130215
  Transmission Date: 20140127
  Serious: Yes (Other)
  Sender: FDA-Public Use
  Company Number: FR-VERTEX PHARMACEUTICALS INC.-2013-002188

PATIENT
  Sex: Male

DRUGS (7)
  1. INCIVO [Suspect]
     Indication: HEPATITIS C
     Route: 065
     Dates: start: 20130123
  2. INCIVO [Suspect]
     Indication: PRODUCT USED FOR UNKNOWN INDICATION
  3. SINTROM [Interacting]
     Indication: ANTICOAGULANT THERAPY
     Dosage: DOSAGE FORM: UNSPECIFIED
     Route: 065
  4. SINTROM [Interacting]
     Dosage: DOSAGE FORM: UNSPECIFIED
     Route: 065
  5. SINTROM [Interacting]
     Dosage: DOSAGE FORM: UNSPECIFIED
     Route: 065
  6. PEG-INTERFERON [Concomitant]
     Indication: PRODUCT USED FOR UNKNOWN INDICATION
     Dosage: DOSAGE FORM: UNSPECIFIED
     Route: 065
     Dates: start: 20130123
  7. RIBAVIRINE [Concomitant]
     Indication: PRODUCT USED FOR UNKNOWN INDICATION
     Dosage: DOSAGE FORM: UNSPECIFIED
     Route: 065
     Dates: start: 20130123

REACTIONS (2)
  - Drug interaction [Unknown]
  - International normalised ratio decreased [Unknown]
